FAERS Safety Report 6095413-9 (Version None)
Quarter: 2009Q1

REPORT INFORMATION
  Report Type: 
  Country: None (occurrence: None)
  Receive Date: 20090227
  Receipt Date: 20080327
  Transmission Date: 20090719
  Serious: No
  Sender: FDA-Public Use
  Company Number: A0717847A

PATIENT
  Age: 40 Year
  Sex: Female

DRUGS (23)
  1. LAMICTAL [Suspect]
     Indication: BIPOLAR DISORDER
     Dosage: 25MG PER DAY
     Route: 048
     Dates: start: 20080325
  2. PLAQUENIL [Concomitant]
  3. MEDROL [Concomitant]
  4. KINERET [Concomitant]
  5. PHENERGAN [Concomitant]
  6. FOLIC ACID [Concomitant]
  7. STADOL [Concomitant]
  8. FLONASE [Concomitant]
  9. LYRICA [Concomitant]
  10. ZOMIG [Concomitant]
  11. KLONOPIN [Concomitant]
  12. XANAX [Concomitant]
  13. MORPHINE [Concomitant]
  14. PERCOCET [Concomitant]
  15. TOPAMAX [Concomitant]
  16. ALDACTONE [Concomitant]
  17. NEXIUM [Concomitant]
  18. CELEBREX [Concomitant]
  19. ZANAFLEX [Concomitant]
  20. REMERON [Concomitant]
  21. AMBIEN [Concomitant]
  22. METHOTREXATE [Concomitant]
  23. FIORICET [Concomitant]

REACTIONS (2)
  - DIPLOPIA [None]
  - VISION BLURRED [None]
